FAERS Safety Report 19565165 (Version 1)
Quarter: 2021Q3

REPORT INFORMATION
  Report Type: Other
  Country: GB (occurrence: GB)
  Receive Date: 20210716
  Receipt Date: 20210716
  Transmission Date: 20211014
  Serious: Yes (Life-Threatening, Hospitalization, Other)
  Sender: FDA-Public Use
  Company Number: GB-IPCA LABORATORIES LIMITED-IPC-2021-GB-001377

PATIENT

DRUGS (8)
  1. DERMOL [Concomitant]
     Active Substance: BENZALKONIUM CHLORIDE\CHLORHEXIDINE HYDROCHLORIDE\ISOPROPYL MYRISTATE\PARAFFIN
     Indication: PRODUCT USED FOR UNKNOWN INDICATION
     Dosage: 500 MILLILITER
     Route: 065
     Dates: start: 20210406
  2. FEXOFENADINE [Concomitant]
     Active Substance: FEXOFENADINE HYDROCHLORIDE
     Indication: PRODUCT USED FOR UNKNOWN INDICATION
     Dosage: 180 MILLIGRAM
     Route: 065
     Dates: start: 20210406
  3. ASTRAZENECA COVID?19 VACCINE [Suspect]
     Active Substance: AZD-1222
     Indication: COVID-19 IMMUNISATION
     Dosage: 0.5 MILLILITER, DOSE 1
     Route: 030
     Dates: start: 20210129, end: 20210129
  4. ACICLOVIR [Concomitant]
     Active Substance: ACYCLOVIR
     Indication: RASH
     Dosage: 800 MILLIGRAM
     Route: 065
     Dates: start: 20210407, end: 20210506
  5. FLUCLOXACILLIN [Concomitant]
     Active Substance: FLUCLOXACILLIN
     Indication: RASH
     Dosage: 500 MILLIGRAM
     Route: 065
     Dates: start: 20210407, end: 20210506
  6. NYSTAN [Concomitant]
     Active Substance: NYSTATIN
     Indication: PRODUCT USED FOR UNKNOWN INDICATION
     Dosage: 1MILLILITRE TO BE DROPPED INTO THE MOUTH FOUR TIMES A DAY
     Route: 048
     Dates: start: 20210406, end: 20210505
  7. HYDROXYCHLOROQUINE SULFATE. [Suspect]
     Active Substance: HYDROXYCHLOROQUINE SULFATE
     Indication: PRODUCT USED FOR UNKNOWN INDICATION
     Dosage: 200 MILLIGRAM
     Route: 065
     Dates: start: 20210319, end: 20210406
  8. ALENDRONIC ACID [Concomitant]
     Active Substance: ALENDRONIC ACID
     Indication: RHEUMATOID ARTHRITIS
     Dosage: 70 MILLIGRAM, WITH A FULL GLASS OF WATER.
     Route: 065
     Dates: start: 20210316

REACTIONS (5)
  - Sepsis [Unknown]
  - Toxic epidermal necrolysis [Unknown]
  - Toxic epidermal necrolysis [Not Recovered/Not Resolved]
  - Rash vesicular [Unknown]
  - Skin exfoliation [Unknown]

NARRATIVE: CASE EVENT DATE: 20210406
